FAERS Safety Report 9498720 (Version 1)
Quarter: 2013Q3

REPORT INFORMATION
  Report Type: Spontaneous
  Country: GB (occurrence: GB)
  Receive Date: 20130904
  Receipt Date: 20130904
  Transmission Date: 20140515
  Serious: Yes (Other)
  Sender: FDA-Public Use
  Company Number: GB-TEVA-429697ISR

PATIENT
  Age: 87 Year
  Sex: Female

DRUGS (1)
  1. PL 00289/1448 TEVA UK LIMITED ZEEBRAL XL PROLONGED RELEASE CAPSULES 1 [Suspect]
     Indication: DEMENTIA ALZHEIMER^S TYPE
     Route: 048

REACTIONS (2)
  - Sedation [Recovered/Resolved]
  - Headache [Recovered/Resolved]
